FAERS Safety Report 17525396 (Version 3)
Quarter: 2020Q2

REPORT INFORMATION
  Report Type: Spontaneous
  Country: US (occurrence: US)
  Receive Date: 20200310
  Receipt Date: 20200615
  Transmission Date: 20200713
  Serious: Yes (Other)
  Sender: FDA-Public Use
  Company Number: US-PFIZER INC-2020104648

PATIENT
  Age: 55 Year
  Sex: Female
  Weight: 49.9 kg

DRUGS (4)
  1. MACROBID [CLARITHROMYCIN] [Concomitant]
     Active Substance: CLARITHROMYCIN
     Indication: CYSTITIS
     Dosage: UNK
  2. BUPIVACAINE HCL [Suspect]
     Active Substance: BUPIVACAINE HYDROCHLORIDE
     Indication: SPINAL ANAESTHESIA
     Dosage: UNK (0.125MG/5CC)
     Dates: start: 20181129, end: 20181203
  3. BUPIVACAINE HCL [Suspect]
     Active Substance: BUPIVACAINE HYDROCHLORIDE
     Indication: ARTERIOSPASM CORONARY
  4. BUPIVACAINE HCL [Suspect]
     Active Substance: BUPIVACAINE HYDROCHLORIDE
     Indication: NERVE BLOCK

REACTIONS (8)
  - Dysgeusia [Not Recovered/Not Resolved]
  - Vision blurred [Recovering/Resolving]
  - Throat irritation [Unknown]
  - Tongue discomfort [Unknown]
  - Urinary retention [Not Recovered/Not Resolved]
  - Catheter site haematoma [Unknown]
  - Cystitis [Unknown]
  - Tinnitus [Not Recovered/Not Resolved]

NARRATIVE: CASE EVENT DATE: 201811
